FAERS Safety Report 19930154 (Version 1)
Quarter: 2021Q4

REPORT INFORMATION
  Report Type: Report from Study
  Country: GB (occurrence: GB)
  Receive Date: 20211007
  Receipt Date: 20211007
  Transmission Date: 20220303
  Serious: Yes (Hospitalization)
  Sender: FDA-Public Use
  Company Number: GB-TEVA-2021-GB-1964573

PATIENT
  Age: 52 Year
  Sex: Female
  Weight: 101 kg

DRUGS (23)
  1. VINCRISTINE SULFATE [Suspect]
     Active Substance: VINCRISTINE SULFATE
     Indication: Diffuse large B-cell lymphoma stage IV
     Dosage: 1.4 MG/M2 DAILY; R-CHOP; SINGLE
     Route: 042
     Dates: start: 20210721, end: 20210721
  2. VINCRISTINE SULFATE [Suspect]
     Active Substance: VINCRISTINE SULFATE
     Dosage: 1.4 MG/M2 DAILY;
     Route: 042
     Dates: start: 20210811, end: 20210811
  3. DOXORUBICIN HYDROCHLORIDE [Suspect]
     Active Substance: DOXORUBICIN HYDROCHLORIDE
     Indication: Diffuse large B-cell lymphoma stage IV
     Dosage: 50 MG/M2 DAILY; R-CHOP; SINGLE
     Route: 042
     Dates: start: 20210721, end: 20210721
  4. DOXORUBICIN HYDROCHLORIDE [Suspect]
     Active Substance: DOXORUBICIN HYDROCHLORIDE
     Dosage: 50 MG/M2 DAILY;
     Route: 042
     Dates: start: 20210811, end: 20210811
  5. CYCLOPHOSPHAMIDE [Suspect]
     Active Substance: CYCLOPHOSPHAMIDE
     Indication: Diffuse large B-cell lymphoma stage IV
     Dosage: 750 MG/M2 DAILY; R-CHOP; SINGLE, STRENGTH : 1G
     Route: 042
     Dates: start: 20210721, end: 20210721
  6. CYCLOPHOSPHAMIDE [Suspect]
     Active Substance: CYCLOPHOSPHAMIDE
     Dosage: 750 MG/M2 DAILY;
     Route: 042
     Dates: start: 20210811, end: 20210811
  7. PREDNISONE [Suspect]
     Active Substance: PREDNISONE
     Indication: Diffuse large B-cell lymphoma stage IV
     Dosage: 100 MILLIGRAM DAILY; TABLET. R-CHOP
     Route: 048
     Dates: start: 20210721, end: 20210725
  8. PREDNISONE [Suspect]
     Active Substance: PREDNISONE
     Dosage: 100 MILLIGRAM DAILY;
     Route: 048
     Dates: start: 20210811, end: 20210815
  9. RITUXIMAB [Suspect]
     Active Substance: RITUXIMAB
     Indication: Diffuse large B-cell lymphoma stage IV
     Dosage: 375 MG/M2 DAILY; R-CHOP; SINGLE
     Route: 042
     Dates: start: 20210721, end: 20210721
  10. RITUXIMAB [Suspect]
     Active Substance: RITUXIMAB
     Dosage: 375 MG/M2 DAILY;
     Route: 042
     Dates: start: 20210811, end: 20210811
  11. EPCORITAMAB [Suspect]
     Active Substance: EPCORITAMAB
     Indication: Diffuse large B-cell lymphoma stage IV
     Dosage: .16 MILLIGRAM DAILY; PRIMING DOSE: 0.16 MG, QD
     Route: 058
     Dates: start: 20210722, end: 20210722
  12. EPCORITAMAB [Suspect]
     Active Substance: EPCORITAMAB
     Dosage: .16 MILLIGRAM DAILY; 0.16 MG, 1X/DAY, RE-PRIMING (RPD1): 0.16 MG
     Route: 065
     Dates: start: 20210811, end: 20210811
  13. ACYCLOVIR [Concomitant]
     Active Substance: ACYCLOVIR
     Dates: start: 20210723
  14. CHLORPHENIRAMINE MALEATE [Concomitant]
     Active Substance: CHLORPHENIRAMINE MALEATE
     Dosage: 10MG
     Route: 042
     Dates: start: 20210722, end: 20210811
  15. CODEINE [Concomitant]
     Active Substance: CODEINE
     Dosage: UNK
     Dates: start: 20210721
  16. COTRIMOXAZOLE [Concomitant]
     Active Substance: SULFAMETHOXAZOLE\TRIMETHOPRIM
     Dosage: UNK
     Dates: start: 20210723
  17. FLUCONAZOLE [Concomitant]
     Active Substance: FLUCONAZOLE
     Dosage: UNK
     Dates: start: 20210723
  18. LANSOPRAZOLE [Concomitant]
     Active Substance: LANSOPRAZOLE
     Dosage: UNK
     Dates: start: 20210723
  19. METOCLOPRAMIDE [Concomitant]
     Active Substance: METOCLOPRAMIDE
     Dosage: UNK
     Dates: start: 20210723
  20. FILGRASTIM [Concomitant]
     Active Substance: FILGRASTIM
  21. ONDANSETRON [Concomitant]
     Active Substance: ONDANSETRON
     Dates: start: 20210721, end: 20210813
  22. ACETAMINOPHEN [Concomitant]
     Active Substance: ACETAMINOPHEN
     Dosage: 1G
     Route: 048
     Dates: start: 20210722, end: 20210811
  23. RASBURICASE [Concomitant]
     Active Substance: RASBURICASE
     Dosage: UNK
     Dates: start: 20210721, end: 20210721

REACTIONS (2)
  - Febrile neutropenia [Recovered/Resolved]
  - Febrile neutropenia [Recovered/Resolved]

NARRATIVE: CASE EVENT DATE: 20210727
